FAERS Safety Report 6919511-X (Version None)
Quarter: 2010Q3

REPORT INFORMATION
  Report Type: 
  Country: None (occurrence: None)
  Receive Date: 20100810
  Receipt Date: 20100810
  Transmission Date: 20110219
  Serious: Yes (Hospitalization)
  Sender: FDA-Public Use
  Company Number: None

PATIENT
  Sex: Female
  Weight: 112.27 kg

DRUGS (3)
  1. CARBOPLATIN [Suspect]
     Dosage: 565 MG
  2. TAXOL [Suspect]
     Dosage: 350 MG
  3. NEULASTA [Suspect]
     Dosage: 6 MG

REACTIONS (5)
  - DEEP VEIN THROMBOSIS [None]
  - EMBOLISM ARTERIAL [None]
  - ERYTHEMA [None]
  - PULMONARY EMBOLISM [None]
  - SKIN WARM [None]
